FAERS Safety Report 25793395 (Version 2)
Quarter: 2025Q3

REPORT INFORMATION
  Report Type: Report from Study
  Country: US (occurrence: US)
  Receive Date: 20250911
  Receipt Date: 20250915
  Transmission Date: 20251020
  Serious: Yes (Other)
  Sender: ABBVIE
  Company Number: US-ABBVIE-6452441

PATIENT
  Sex: Male

DRUGS (1)
  1. CREON [Suspect]
     Active Substance: PANCRELIPASE AMYLASE\PANCRELIPASE LIPASE\PANCRELIPASE PROTEASE
     Indication: Pancreatic failure
     Route: 048

REACTIONS (11)
  - Pancreatic carcinoma [Unknown]
  - Amnesia [Unknown]
  - Feeding disorder [Unknown]
  - Speech disorder [Unknown]
  - Hypoacusis [Unknown]
  - Visual impairment [Unknown]
  - Cognitive disorder [Unknown]
  - Body height decreased [Unknown]
  - Ageusia [Unknown]
  - Nausea [Unknown]
  - Dysphonia [Unknown]
